FAERS Safety Report 17250308 (Version 1)
Quarter: 2020Q1

REPORT INFORMATION
  Report Type: Spontaneous
  Country: US (occurrence: US)
  Receive Date: 20200109
  Receipt Date: 20200109
  Transmission Date: 20200409
  Serious: No
  Sender: FDA-Public Use
  Company Number: US-ALLERGAN-1924731US

PATIENT
  Age: 50 Year
  Sex: Female

DRUGS (5)
  1. ACZONE [Suspect]
     Active Substance: DAPSONE
     Indication: ACNE
     Dosage: UNK, QD
     Route: 061
     Dates: start: 201805
  2. SOOLANTRA [Concomitant]
     Active Substance: IVERMECTIN
  3. VITAMIN C SERUM [Concomitant]
  4. ESTEE LAUDER NIGHT REPAIR [Concomitant]
  5. SUNSCREEN [Concomitant]
     Active Substance: HOMOSALATE\OCTINOXATE\OCTISALATE\OXYBENZONE\TITANIUM DIOXIDE

REACTIONS (1)
  - Skin discolouration [Unknown]
